FAERS Safety Report 5965491-3 (Version None)
Quarter: 2008Q4

REPORT INFORMATION
  Report Type: 
  Country: None (occurrence: None)
  Receive Date: 20081121
  Receipt Date: 20080915
  Transmission Date: 20090506
  Serious: Yes (Other)
  Sender: FDA-Public Use
  Company Number: 2008S1016896

PATIENT
  Age: 66 Year
  Sex: Male

DRUGS (7)
  1. PRAVASTATIN [Suspect]
     Indication: BLOOD CHOLESTEROL INCREASED
     Dosage: 40 MG, ORAL
     Route: 048
     Dates: start: 20080401, end: 20080701
  2. SIMVASTATIN [Suspect]
     Indication: BLOOD CHOLESTEROL INCREASED
     Dosage: 40 MG, ORAL
     Route: 048
     Dates: start: 20070401, end: 20080101
  3. ALLOPURINOL [Concomitant]
  4. AMLODIPINE [Concomitant]
  5. ASPIRIN [Concomitant]
  6. BISOPROLOL FUMARATE [Concomitant]
  7. TERAZOSIN HCL [Concomitant]

REACTIONS (1)
  - DYSPNOEA EXERTIONAL [None]
